FAERS Safety Report 7025211-0 (Version None)
Quarter: 2010Q4

REPORT INFORMATION
  Report Type: 
  Country: None (occurrence: None)
  Receive Date: 20101001
  Receipt Date: 20100922
  Transmission Date: 20110411
  Serious: Yes (Other)
  Sender: FDA-Public Use
  Company Number: US-PURDUE-USA-2010-0048139

PATIENT
  Sex: Male

DRUGS (3)
  1. OXYCONTIN [Suspect]
     Indication: PAIN
     Dosage: 80 MG, BID
     Dates: start: 20100919
  2. OXYCONTIN [Suspect]
     Dosage: 40 MG, DAILY
     Dates: start: 20100916
  3. OXYCODONE HCL [Suspect]
     Indication: BREAKTHROUGH PAIN
     Dosage: 5 MG, UNK

REACTIONS (2)
  - PAIN [None]
  - RASH GENERALISED [None]
